FAERS Safety Report 19148619 (Version 13)
Quarter: 2023Q1

REPORT INFORMATION
  Report Type: Report from Study
  Country: DE (occurrence: DE)
  Receive Date: 20210416
  Receipt Date: 20230223
  Transmission Date: 20230418
  Serious: Yes (Hospitalization)
  Sender: FDA-Public Use
  Company Number: NVSC2021DE081566

PATIENT
  Age: 36 Year
  Sex: Female
  Weight: 65 kg

DRUGS (21)
  1. DABRAFENIB [Suspect]
     Active Substance: DABRAFENIB
     Indication: Malignant melanoma
     Dosage: 300 MG
     Route: 048
     Dates: start: 20210309, end: 20210314
  2. DABRAFENIB [Suspect]
     Active Substance: DABRAFENIB
     Dosage: 300 MG
     Route: 048
     Dates: start: 20210309, end: 20210315
  3. DABRAFENIB [Suspect]
     Active Substance: DABRAFENIB
     Dosage: 300 MG
     Route: 065
     Dates: start: 20210309, end: 20210318
  4. DABRAFENIB [Suspect]
     Active Substance: DABRAFENIB
     Dosage: 300 MG
     Route: 065
     Dates: start: 20210309, end: 20210330
  5. DABRAFENIB [Suspect]
     Active Substance: DABRAFENIB
     Dosage: 300 MG
     Route: 048
     Dates: start: 20210309, end: 20210403
  6. DABRAFENIB [Suspect]
     Active Substance: DABRAFENIB
     Dosage: 300 MG (150 MG, BID)
     Route: 065
     Dates: start: 20210309, end: 20210404
  7. DABRAFENIB [Suspect]
     Active Substance: DABRAFENIB
     Dosage: 300 MG
     Route: 065
     Dates: start: 20210309, end: 20210406
  8. DABRAFENIB [Suspect]
     Active Substance: DABRAFENIB
     Dosage: UNK
     Route: 065
     Dates: start: 20210406
  9. DABRAFENIB [Suspect]
     Active Substance: DABRAFENIB
     Dosage: 300 MG
     Route: 048
     Dates: start: 20210309, end: 20210417
  10. DABRAFENIB [Suspect]
     Active Substance: DABRAFENIB
     Dosage: 300 MG
     Route: 048
     Dates: start: 20210309, end: 20210701
  11. DABRAFENIB [Suspect]
     Active Substance: DABRAFENIB
     Dosage: 300 MG (LAST DOSE RECEIVED ON 20 DEC 2021)
     Route: 065
     Dates: start: 20210309
  12. TRAMETINIB [Suspect]
     Active Substance: TRAMETINIB
     Indication: Malignant melanoma
     Dosage: 2 MG
     Route: 048
     Dates: start: 20210309, end: 20210314
  13. TRAMETINIB [Suspect]
     Active Substance: TRAMETINIB
     Dosage: 2 MG
     Route: 048
     Dates: start: 20210309, end: 20210315
  14. TRAMETINIB [Suspect]
     Active Substance: TRAMETINIB
     Dosage: 2 MG
     Route: 065
     Dates: start: 20210309, end: 20210330
  15. TRAMETINIB [Suspect]
     Active Substance: TRAMETINIB
     Dosage: 2 MG
     Route: 048
     Dates: start: 20210309, end: 20210403
  16. TRAMETINIB [Suspect]
     Active Substance: TRAMETINIB
     Dosage: 2 MG, QD
     Route: 065
     Dates: start: 20210309, end: 20210404
  17. TRAMETINIB [Suspect]
     Active Substance: TRAMETINIB
     Dosage: 2 MG
     Route: 065
     Dates: start: 20210309, end: 20210406
  18. TRAMETINIB [Suspect]
     Active Substance: TRAMETINIB
     Dosage: UNK
     Route: 065
     Dates: start: 20210406
  19. TRAMETINIB [Suspect]
     Active Substance: TRAMETINIB
     Dosage: 2 MG
     Route: 048
     Dates: start: 20210309, end: 20210417
  20. TRAMETINIB [Suspect]
     Active Substance: TRAMETINIB
     Dosage: 2 MG
     Route: 048
     Dates: start: 20210309, end: 20210701
  21. TRAMETINIB [Suspect]
     Active Substance: TRAMETINIB
     Dosage: 2 MG (LAST DOSE RECEIVED ON 20 DEC 2021)
     Route: 048
     Dates: start: 20210309

REACTIONS (19)
  - Inflammation [Recovered/Resolved]
  - Pyrexia [Recovered/Resolved]
  - Dyspnoea [Recovered/Resolved]
  - Procalcitonin increased [Unknown]
  - General physical health deterioration [Recovered/Resolved]
  - Fatigue [Recovered/Resolved]
  - Headache [Recovered/Resolved]
  - Photosensitivity reaction [Recovered/Resolved]
  - Alanine aminotransferase increased [Recovered/Resolved]
  - Aspartate aminotransferase increased [Recovered/Resolved]
  - Oedema peripheral [Recovered/Resolved]
  - Pain in extremity [Recovered/Resolved]
  - Nausea [Recovered/Resolved]
  - Vomiting [Recovered/Resolved]
  - Photosensitivity reaction [Recovered/Resolved]
  - Dyspnoea [Recovered/Resolved]
  - Gamma-glutamyltransferase increased [Recovered/Resolved]
  - Rash maculo-papular [Not Recovered/Not Resolved]
  - Arthralgia [Recovered/Resolved]

NARRATIVE: CASE EVENT DATE: 20210312
